FAERS Safety Report 21746687 (Version 1)
Quarter: 2022Q4

REPORT INFORMATION
  Report Type: Spontaneous
  Country: US (occurrence: None)
  Receive Date: 20221216
  Receipt Date: 20221216
  Transmission Date: 20230112
  Serious: No
  Sender: FDA-Public Use
  Company Number: None

PATIENT
  Age: 69 Year
  Sex: Female

DRUGS (15)
  1. CAPECITABINE [Suspect]
     Active Substance: CAPECITABINE
     Indication: Breast cancer female
     Dosage: FREQUENCY : TWICE A DAY;?
     Route: 048
  2. ADULT ASPIRIN [Concomitant]
  3. ADVAIR DISKUS [Concomitant]
  4. AZATHIOPRINE [Concomitant]
  5. COENZYME Q10 [Concomitant]
     Active Substance: DIETARY SUPPLEMENT\UBIDECARENONE
  6. FISH OIL [Concomitant]
  7. ESCITALOPRAM OXALATE [Concomitant]
  8. VITAMIN D3 [Concomitant]
  9. LETROAZOLE [Concomitant]
  10. LEVOCETIRIZINE [Concomitant]
  11. MAG-OXIDE [Concomitant]
  12. METFORMIN [Concomitant]
  13. MONATELUKAST SODIUM [Concomitant]
  14. RAMIPRIL [Concomitant]
  15. ROSUVASTATIN [Concomitant]

REACTIONS (1)
  - Hospice care [None]
